FAERS Safety Report 10764933 (Version 7)
Quarter: 2015Q4

REPORT INFORMATION
  Report Type: Spontaneous
  Country: US (occurrence: US)
  Receive Date: 20150205
  Receipt Date: 20151001
  Transmission Date: 20160304
  Serious: Yes (Other)
  Sender: FDA-Public Use
  Company Number: US-PFIZER INC-2015038832

PATIENT
  Age: 61 Year
  Sex: Male
  Weight: 90 kg

DRUGS (10)
  1. OMEPRAZOLE. [Concomitant]
     Active Substance: OMEPRAZOLE
     Dosage: 240 MG, UNK
  2. SUTENT [Suspect]
     Active Substance: SUNITINIB MALATE
     Indication: CHRONIC KIDNEY DISEASE
     Dosage: 37.5 MG, 1X/DAY, 28 DAYS ON AND THEN 14 DAYS OFF
     Dates: start: 20150520
  3. VITAMIN D [Concomitant]
     Active Substance: CHOLECALCIFEROL
     Dosage: 5000 IU, UNK
  4. VITAMIN C [Concomitant]
     Active Substance: ASCORBIC ACID
     Dosage: UNK
  5. SUTENT [Suspect]
     Active Substance: SUNITINIB MALATE
     Indication: RENAL CANCER
     Dosage: 50 MG, UNK
     Dates: start: 201008
  6. LEVOTHYROXINE. [Concomitant]
     Active Substance: LEVOTHYROXINE
     Dosage: 125 MG, UNK
  7. WARFARIN [Concomitant]
     Active Substance: WARFARIN
     Dosage: 2.5 MG, UNK
  8. SUTENT [Suspect]
     Active Substance: SUNITINIB MALATE
     Indication: METASTASIS
  9. SUTENT [Suspect]
     Active Substance: SUNITINIB MALATE
     Indication: METASTASES TO LUNG
  10. PRAVASTATIN [Concomitant]
     Active Substance: PRAVASTATIN\PRAVASTATIN SODIUM
     Dosage: 80 MG, UNK

REACTIONS (15)
  - Dry skin [Recovered/Resolved]
  - Pruritus [Unknown]
  - Malaise [Unknown]
  - Diarrhoea [Recovered/Resolved]
  - Blood count abnormal [Recovered/Resolved]
  - Cough [Unknown]
  - Hyperaesthesia [Unknown]
  - Cognitive disorder [Unknown]
  - Nasopharyngitis [Unknown]
  - Weight fluctuation [Recovered/Resolved]
  - Weight decreased [Unknown]
  - Palmar-plantar erythrodysaesthesia syndrome [Recovered/Resolved]
  - Dysstasia [Recovered/Resolved]
  - Appetite disorder [Recovered/Resolved]
  - Throat irritation [Unknown]

NARRATIVE: CASE EVENT DATE: 2012
